FAERS Safety Report 6639576-2 (Version None)
Quarter: 2010Q1

REPORT INFORMATION
  Report Type: 
  Country: None (occurrence: None)
  Receive Date: 20100318
  Receipt Date: 20100308
  Transmission Date: 20100710
  Serious: Yes (Other)
  Sender: FDA-Public Use
  Company Number: CA-JNJFOC-20090900993

PATIENT
  Age: 19 Year
  Sex: Female

DRUGS (5)
  1. REMICADE [Suspect]
     Indication: CROHN'S DISEASE
     Route: 042
  2. REMICADE [Suspect]
     Route: 042
  3. METFORMIN HCL [Concomitant]
  4. PURETHINOL [Concomitant]
     Dosage: ^HS^
  5. LIPITOR [Concomitant]

REACTIONS (2)
  - FALL [None]
  - FOOT FRACTURE [None]
